FAERS Safety Report 17646805 (Version 2)
Quarter: 2021Q1

REPORT INFORMATION
  Report Type: Report from Study
  Country: DE (occurrence: DE)
  Receive Date: 20200408
  Receipt Date: 20210223
  Transmission Date: 20210419
  Serious: Yes (Death, Hospitalization, Other)
  Sender: FDA-Public Use
  Company Number: DE-PFIZER INC-2020144789

PATIENT
  Age: 79 Year
  Sex: Male

DRUGS (24)
  1. TORASEMIDE [Concomitant]
     Active Substance: TORSEMIDE
     Dosage: 15 OT, QD
     Route: 065
     Dates: start: 20190201
  2. ALLOPURINOL. [Concomitant]
     Active Substance: ALLOPURINOL
     Dosage: 300 OT, QD
     Route: 065
     Dates: start: 20190201
  3. SITAGLIPTIN METFORMIN [Concomitant]
     Active Substance: METFORMIN HYDROCHLORIDE\SITAGLIPTIN PHOSPHATE
     Indication: DIABETES MELLITUS
     Dosage: 1 DF (50/1000 MG), QD
     Route: 065
     Dates: start: 1989, end: 20190108
  4. TAZOBAC [Suspect]
     Active Substance: PIPERACILLIN SODIUM\TAZOBACTAM SODIUM
     Indication: PNEUMONIA
     Dosage: UNK
     Route: 065
     Dates: start: 20190319
  5. JANUVIA [Concomitant]
     Active Substance: SITAGLIPTIN PHOSPHATE
     Indication: DIABETES MELLITUS
     Dosage: 50 OT, QD
     Route: 065
     Dates: start: 20190201
  6. THIAMAZOLE [Concomitant]
     Active Substance: METHIMAZOLE
     Indication: HYPERTHYROIDISM
     Dosage: 5 MG, QD
     Route: 065
     Dates: start: 20190108, end: 20190403
  7. ALLOPURINOL. [Concomitant]
     Active Substance: ALLOPURINOL
     Indication: HYPERURICAEMIA
     Dosage: 150 MG, QD
     Route: 065
     Dates: start: 201804, end: 20190108
  8. FERRO SANOL [Concomitant]
     Active Substance: FERROUS GLYCINE SULFATE
     Dosage: 50 OT, QD
     Route: 065
     Dates: start: 20190201, end: 20190403
  9. TAZOBAC [Suspect]
     Active Substance: PIPERACILLIN SODIUM\TAZOBACTAM SODIUM
     Indication: CARDIAC FAILURE
  10. XIPAMIDE [Concomitant]
     Active Substance: XIPAMIDE
     Dosage: 20 OT, QD
     Route: 065
     Dates: start: 20190108, end: 20190403
  11. SPIRONOLACTONE. [Concomitant]
     Active Substance: SPIRONOLACTONE
     Indication: OEDEMA PERIPHERAL
     Dosage: 50 OT, QD
     Route: 065
     Dates: start: 20180423, end: 20190108
  12. APIDRA [Concomitant]
     Active Substance: INSULIN GLULISINE
     Dosage: 16,8 IU (16?8?16 IU/DAY)
     Route: 058
     Dates: start: 20190108
  13. JAKAVI [Suspect]
     Active Substance: RUXOLITINIB
     Indication: PRIMARY MYELOFIBROSIS
     Dosage: 10 MG, 1X/DAY (QD)
     Route: 048
     Dates: start: 20180605
  14. PREGABALIN. [Concomitant]
     Active Substance: PREGABALIN
     Indication: PERIPHERAL ARTERIAL OCCLUSIVE DISEASE
     Dosage: 150 MG, QD
     Route: 065
     Dates: start: 20180420
  15. BISOPROLOL [Concomitant]
     Active Substance: BISOPROLOL
     Indication: HYPERTENSION
     Dosage: 2.5 MG, QD
     Route: 065
     Dates: start: 2010
  16. DUODART [Concomitant]
     Active Substance: DUTASTERIDE\TAMSULOSIN
     Indication: BENIGN PROSTATIC HYPERPLASIA
     Dosage: 0.5 MG, QD
     Route: 065
     Dates: start: 20180420
  17. PANTOPRAZOLE [Concomitant]
     Active Substance: PANTOPRAZOLE
     Indication: PROPHYLAXIS
     Dosage: 40 MG, QD
     Route: 065
     Dates: start: 20180420
  18. ASPIRIN. [Concomitant]
     Active Substance: ASPIRIN
     Indication: PERIPHERAL ARTERIAL OCCLUSIVE DISEASE
     Dosage: 100 MG, QD
     Route: 065
     Dates: start: 20180420
  19. FERRO SANOL [Concomitant]
     Active Substance: FERROUS GLYCINE SULFATE
     Indication: IRON DEFICIENCY
     Dosage: 50 MG, QD
     Route: 065
     Dates: start: 20180409, end: 20180614
  20. AMLODIPINE [Concomitant]
     Active Substance: AMLODIPINE BESYLATE
     Indication: HYPERTENSION
     Dosage: 5 MG, QD
     Route: 065
     Dates: start: 20180420, end: 20190403
  21. METHIZOL [Concomitant]
     Active Substance: METHIMAZOLE
     Indication: HYPERTHYROIDISM
     Dosage: 5 MG, QD
     Route: 065
     Dates: start: 20180416, end: 20180801
  22. TORASEMIDE [Concomitant]
     Active Substance: TORSEMIDE
     Indication: OEDEMA PERIPHERAL
     Dosage: 10 MG, QD
     Route: 065
     Dates: start: 20180423, end: 20180605
  23. LANTUS [Concomitant]
     Active Substance: INSULIN GLARGINE
     Dosage: 16 IU, QHS
     Route: 058
     Dates: start: 20190108
  24. FINASTERIDE. [Concomitant]
     Active Substance: FINASTERIDE
     Indication: BENIGN PROSTATIC HYPERPLASIA
     Dosage: 5 MG, QD
     Route: 065
     Dates: start: 20190423

REACTIONS (15)
  - Electrolyte imbalance [Recovered/Resolved]
  - Pneumonia [Recovered/Resolved]
  - Conjunctival haemorrhage [Recovered/Resolved]
  - Drug hypersensitivity [Unknown]
  - Dyspnoea [Fatal]
  - General physical health deterioration [Fatal]
  - Hyperuricaemia [Recovered/Resolved]
  - Renal failure [Recovered/Resolved]
  - Renal failure [Fatal]
  - Cardiac failure [Recovered/Resolved]
  - Hypokalaemia [Not Recovered/Not Resolved]
  - Renal function test abnormal [Fatal]
  - Micturition disorder [Recovered/Resolved]
  - Pleural effusion [Fatal]
  - Renal impairment [Fatal]

NARRATIVE: CASE EVENT DATE: 20190108
